FAERS Safety Report 5154229-8 (Version None)
Quarter: 2006Q4

REPORT INFORMATION
  Report Type: 
  Country: None (occurrence: None)
  Receive Date: 20061114
  Receipt Date: 20060914
  Transmission Date: 20070319
  Serious: No
  Sender: FDA-Public Use
  Company Number: 2006SP003190

PATIENT
  Age: 28 Year
  Sex: Male

DRUGS (1)
  1. DESLORATADINE [Suspect]
     Indication: SEASONAL ALLERGY
     Dosage: 5 MG
     Dates: start: 20050101, end: 20060101

REACTIONS (1)
  - RECTAL HAEMORRHAGE [None]
